FAERS Safety Report 19174731 (Version 2)
Quarter: 2021Q2

REPORT INFORMATION
  Report Type: Report from Study
  Country: US (occurrence: US)
  Receive Date: 20210423
  Receipt Date: 20210506
  Transmission Date: 20210717
  Serious: No
  Sender: FDA-Public Use
  Company Number: US-BRISTOL-MYERS SQUIBB COMPANY-BMS-2021-038969

PATIENT
  Age: 73 Year
  Sex: Female
  Weight: 67.57 kg

DRUGS (4)
  1. ELIQUIS [Concomitant]
     Active Substance: APIXABAN
     Indication: PULMONARY EMBOLISM
     Dosage: UNK
     Route: 065
     Dates: start: 202012
  2. SODIUM BROMIDE [Concomitant]
     Active Substance: SODIUM BROMIDE
     Indication: DYSPNOEA
     Dosage: LIQUID SOLUTION
     Route: 065
  3. ABATACEPT [Suspect]
     Active Substance: ABATACEPT
     Indication: RHEUMATOID ARTHRITIS
     Dosage: 125MG/ML,QWK
     Route: 058
     Dates: start: 20210226
  4. ABATACEPT [Suspect]
     Active Substance: ABATACEPT
     Dosage: 125 MILLIGRAM, QWK
     Route: 058
     Dates: start: 202102

REACTIONS (2)
  - Device malfunction [Unknown]
  - Drug ineffective [Unknown]
